FAERS Safety Report 19013339 (Version 2)
Quarter: 2022Q2

REPORT INFORMATION
  Report Type: Report from Study
  Country: BR (occurrence: BR)
  Receive Date: 20210315
  Receipt Date: 20220606
  Transmission Date: 20220720
  Serious: Yes (Death, Life-Threatening, Other)
  Sender: FDA-Public Use
  Company Number: BR-TAKEDA-SPV1-2012-00457

PATIENT
  Age: 22 Year
  Sex: Male
  Weight: 30 kg

DRUGS (11)
  1. ELAPRASE [Suspect]
     Active Substance: IDURSULFASE
     Indication: Mucopolysaccharidosis II
     Dosage: UNK, 1/WEEK
     Route: 041
     Dates: start: 20050216
  2. ELAPRASE [Suspect]
     Active Substance: IDURSULFASE
     Dosage: 0.5 MILLIGRAM/KILOGRAM, 1/WEEK
     Route: 042
     Dates: start: 20180603
  3. CAPTOPRIL [Concomitant]
     Active Substance: CAPTOPRIL
     Indication: Cardiovascular disorder
     Dosage: 25 MG, 1X/DAY:QD
     Route: 048
     Dates: start: 20051018
  4. FRUSEMIDE                          /00032601/ [Concomitant]
     Indication: Cardiovascular disorder
     Dosage: 40 MILLIGRAM, QD
     Route: 048
     Dates: start: 20051019
  5. DIGOXIN [Concomitant]
     Active Substance: DIGOXIN
     Indication: Cardiovascular disorder
     Dosage: 0.12 MG, 2X/DAY:BID
     Route: 048
     Dates: start: 20051018
  6. PROPRANOLOL [Concomitant]
     Active Substance: PROPRANOLOL HYDROCHLORIDE
     Indication: Cardiovascular disorder
     Dosage: 20 MILLIGRAM, QD
     Route: 048
  7. DIPHENHYDRAMINE [Concomitant]
     Active Substance: DIPHENHYDRAMINE
     Indication: Premedication
     Dosage: UNK, UNKNOWN
     Route: 042
  8. AMOXICILLIN [Concomitant]
     Active Substance: AMOXICILLIN
     Indication: Infection
     Dosage: UNK, UNKNOWN
     Route: 048
     Dates: start: 20070513, end: 20070517
  9. AMOXICILLIN [Concomitant]
     Active Substance: AMOXICILLIN
     Dosage: UNK
     Route: 065
     Dates: start: 200804, end: 200805
  10. ERYTHROMYCIN [Concomitant]
     Active Substance: ERYTHROMYCIN
     Indication: Infection
     Dosage: UNK, UNKNOWN
     Route: 048
     Dates: start: 20070223, end: 20070227
  11. METHYLPREDNISOLONE [Concomitant]
     Active Substance: METHYLPREDNISOLONE
     Indication: Premedication
     Dosage: UNK
     Route: 042

REACTIONS (1)
  - Cardiac failure [Fatal]

NARRATIVE: CASE EVENT DATE: 20120302
